FAERS Safety Report 9297226 (Version 1)
Quarter: 2013Q2

REPORT INFORMATION
  Report Type: Spontaneous
  Country: US (occurrence: US)
  Receive Date: 20130520
  Receipt Date: 20130520
  Transmission Date: 20140414
  Serious: No
  Sender: FDA-Public Use
  Company Number: US-BIOGENIDEC-2013BI042835

PATIENT
  Sex: Female

DRUGS (2)
  1. AVONEX [Suspect]
     Indication: MULTIPLE SCLEROSIS
     Route: 030
     Dates: start: 20070518, end: 201011
  2. AVONEX [Suspect]
     Indication: MULTIPLE SCLEROSIS
     Route: 030
     Dates: start: 201011, end: 2012

REACTIONS (10)
  - Vertigo [Recovered/Resolved]
  - Peroneal nerve palsy [Not Recovered/Not Resolved]
  - Fall [Recovered/Resolved]
  - Balance disorder [Not Recovered/Not Resolved]
  - Borderline glaucoma [Unknown]
  - Blindness [Unknown]
  - Multiple sclerosis [Unknown]
  - Band sensation [Unknown]
  - Influenza like illness [Recovered/Resolved]
  - Dizziness [Unknown]
